FAERS Safety Report 6127630-3 (Version None)
Quarter: 2009Q1

REPORT INFORMATION
  Report Type: 
  Country: None (occurrence: None)
  Receive Date: 20090323
  Receipt Date: 20090309
  Transmission Date: 20090719
  Serious: Yes (Other)
  Sender: FDA-Public Use
  Company Number: CA-PURDUE-CAN_2009_0000929

PATIENT
  Age: 94 Year
  Sex: Female
  Weight: 45 kg

DRUGS (7)
  1. UNIPHYL [Suspect]
     Indication: CHRONIC OBSTRUCTIVE PULMONARY DISEASE
     Dosage: 400 MG, DAILY
     Route: 048
     Dates: start: 20081101, end: 20090305
  2. APO-ACETAZOLAMIDE [Concomitant]
     Indication: CHRONIC OBSTRUCTIVE PULMONARY DISEASE
     Dosage: 250 MG, DAILY
     Route: 048
  3. DILTIAZEM [Concomitant]
     Indication: HYPERTENSION
     Dosage: 240 MG, UNK
  4. PREVACID [Concomitant]
     Indication: GASTRIC ULCER
     Dosage: 30 MG, DAILY
     Route: 048
  5. SALBUTAMOL [Concomitant]
     Indication: CHRONIC OBSTRUCTIVE PULMONARY DISEASE
     Route: 055
  6. ADVAIR HFA [Concomitant]
     Indication: CHRONIC OBSTRUCTIVE PULMONARY DISEASE
     Dosage: UNK, UNK
     Route: 055
  7. SPIRIVA [Concomitant]
     Indication: CHRONIC OBSTRUCTIVE PULMONARY DISEASE
     Dosage: 18 MCG, UNK
     Route: 055

REACTIONS (5)
  - ABDOMINAL PAIN UPPER [None]
  - ASTHENIA [None]
  - IRRITABILITY [None]
  - NAUSEA [None]
  - TREMOR [None]
